FAERS Safety Report 6877483-0 (Version None)
Quarter: 2010Q3

REPORT INFORMATION
  Report Type: 
  Country: None (occurrence: None)
  Receive Date: 20100727
  Receipt Date: 20091020
  Transmission Date: 20110219
  Serious: No
  Sender: FDA-Public Use
  Company Number: US-ABBOTT-09P-163-0604504-00

PATIENT
  Sex: Male
  Weight: 108.96 kg

DRUGS (2)
  1. SYNTHROID [Suspect]
     Indication: HYPOTHYROIDISM
     Dates: start: 20090710
  2. SYNTHROID [Suspect]
     Dosage: UNSURE OF STARTING STRENGTH
     Route: 048

REACTIONS (5)
  - ABDOMINAL DISTENSION [None]
  - CONSTIPATION [None]
  - SENSATION OF PRESSURE [None]
  - SENSORY DISTURBANCE [None]
  - URINARY INCONTINENCE [None]
